FAERS Safety Report 11469500 (Version 2)
Quarter: 2015Q3

REPORT INFORMATION
  Report Type: Spontaneous
  Country: US (occurrence: None)
  Receive Date: 20150908
  Receipt Date: 20150917
  Transmission Date: 20151125
  Serious: Yes (Hospitalization, Other)
  Sender: FDA-Public Use
  Company Number: ADR-2015-01498

PATIENT
  Age: 24 Year
  Sex: Female

DRUGS (1)
  1. LIORESAL [Suspect]
     Active Substance: BACLOFEN
     Indication: MUSCLE SPASTICITY
     Dosage: 997.1 MCG/DAY

REACTIONS (4)
  - Hyperhidrosis [None]
  - Hypertonia [None]
  - Abnormal behaviour [None]
  - Agitation [None]
